FAERS Safety Report 13726163 (Version 2)
Quarter: 2017Q4

REPORT INFORMATION
  Report Type: Spontaneous
  Country: SE (occurrence: SE)
  Receive Date: 20170706
  Receipt Date: 20171002
  Transmission Date: 20180320
  Serious: Yes (Other)
  Sender: FDA-Public Use
  Company Number: SE-BAYER-2017-126102

PATIENT
  Sex: Female

DRUGS (1)
  1. MIRENA [Suspect]
     Active Substance: LEVONORGESTREL
     Indication: MENORRHAGIA
     Dosage: 20 MCG/24HR, CONT
     Route: 015
     Dates: end: 20170224

REACTIONS (13)
  - Keratitis [None]
  - Lethargy [None]
  - Dizziness [None]
  - Vision blurred [None]
  - Anxiety [None]
  - Ovarian cyst [None]
  - Visual impairment [None]
  - Acne [None]
  - Photophobia [None]
  - Depressed mood [None]
  - Breast pain [None]
  - Constipation [None]
  - Migraine [None]
